FAERS Safety Report 5484125-8 (Version None)
Quarter: 2007Q4

REPORT INFORMATION
  Report Type: 
  Country: None (occurrence: None)
  Receive Date: 20071012
  Receipt Date: 20071005
  Transmission Date: 20080405
  Serious: Yes (Life-Threatening, Hospitalization)
  Sender: FDA-Public Use
  Company Number: US-JNJFOC-20070306339

PATIENT
  Sex: Female
  Weight: 64 kg

DRUGS (2)
  1. ORTHO EVRA [Suspect]
     Indication: CONTRACEPTION
     Route: 062
  2. LORTAB [Concomitant]

REACTIONS (5)
  - ABORTION INDUCED [None]
  - ATRIAL SEPTAL DEFECT REPAIR [None]
  - DEEP VEIN THROMBOSIS [None]
  - EMBOLIC STROKE [None]
  - SINUS TACHYCARDIA [None]
